FAERS Safety Report 13535863 (Version 1)
Quarter: 2017Q2

REPORT INFORMATION
  Report Type: Spontaneous
  Country: GB (occurrence: GB)
  Receive Date: 20170511
  Receipt Date: 20170511
  Transmission Date: 20170830
  Serious: Yes (Other)
  Sender: FDA-Public Use
  Company Number: GB-TEVA-766655ROM

PATIENT

DRUGS (6)
  1. PREDNISOLONE. [Suspect]
     Active Substance: PREDNISOLONE
     Indication: HIV INFECTION
     Route: 050
  2. EMTRICITABINE, TENOFOVIR DISOPROXIL FUMARATE [Concomitant]
     Active Substance: EMTRICITABINE\TENOFOVIR DISOPROXIL FUMARATE
     Indication: HIV INFECTION
     Route: 065
  3. TRIAMCINOLONE [Interacting]
     Active Substance: TRIAMCINOLONE
     Indication: HIV INFECTION
     Route: 050
  4. DEPOMEDRONE [Interacting]
     Active Substance: METHYLPREDNISOLONE ACETATE
     Indication: HIV INFECTION
     Dosage: MULTIPLE TIMES
     Route: 050
  5. SAQUINAVIR [Interacting]
     Active Substance: SAQUINAVIR
     Indication: HIV INFECTION
     Route: 065
  6. RITONAVIR. [Interacting]
     Active Substance: RITONAVIR
     Indication: HIV INFECTION
     Route: 065

REACTIONS (2)
  - Drug interaction [Not Recovered/Not Resolved]
  - Cushing^s syndrome [Not Recovered/Not Resolved]
